FAERS Safety Report 8112240-9 (Version None)
Quarter: 2012Q1

REPORT INFORMATION
  Report Type: 
  Country: None (occurrence: None)
  Receive Date: 20120131
  Receipt Date: 20120121
  Transmission Date: 20120608
  Serious: Yes (Hospitalization, Other)
  Sender: FDA-Public Use
  Company Number: ADR-2012-00179

PATIENT
  Sex: Female

DRUGS (2)
  1. LIORESAL [Suspect]
     Indication: MUSCLE SPASTICITY
     Dosage: 236 MCG/DAY
     Route: 037
  2. LIORESAL [Suspect]
     Indication: CEREBROVASCULAR ACCIDENT
     Dosage: 236 MCG/DAY
     Route: 037

REACTIONS (5)
  - WITHDRAWAL SYNDROME [None]
  - MALAISE [None]
  - HYPERTONIA [None]
  - DEVICE DISLOCATION [None]
  - NASOPHARYNGITIS [None]
